FAERS Safety Report 6369043-5 (Version None)
Quarter: 2009Q3

REPORT INFORMATION
  Report Type: 
  Country: None (occurrence: None)
  Receive Date: 20090922
  Receipt Date: 20090910
  Transmission Date: 20100115
  Serious: Yes (Other)
  Sender: FDA-Public Use
  Company Number: PHHY2009BR39056

PATIENT
  Sex: Female

DRUGS (9)
  1. DIOVAN [Suspect]
     Indication: HEART RATE
     Dosage: 1 TABLET (320 MG) A DAY
     Route: 048
  2. NEOSALDINA [Concomitant]
     Indication: HEADACHE
     Dosage: 35 DROPS, 3-4 TIMES DAILY
     Route: 048
  3. NIFEDIPINE [Concomitant]
     Indication: CARDIAC DISORDER
     Dosage: 2 TABLETS DAILY
     Route: 048
  4. LORATADINE [Concomitant]
     Indication: DRUG HYPERSENSITIVITY
     Dosage: 1 TABLET DAILY, PRN
     Route: 048
  5. OMEPRAZOLE [Concomitant]
     Indication: GASTRIC DISORDER
     Dosage: 1 CAPSULE IN FASTING
     Route: 048
  6. SUSTRATE [Concomitant]
     Indication: CHEST PAIN
     Dosage: 1 OR 2 TABLETS DAILY
     Route: 048
  7. SUSTRATE [Concomitant]
     Indication: BACK PAIN
  8. BROMAZEPAM [Concomitant]
     Indication: SLEEP DISORDER
     Dosage: 6 MG, UNK
     Route: 048
  9. BUSCOPAN [Concomitant]
     Indication: ABDOMINAL PAIN
     Dosage: 35 TO 40 DROPS QD
     Route: 048

REACTIONS (17)
  - ABDOMINAL PAIN [None]
  - ANORECTAL DISORDER [None]
  - ARTHRALGIA [None]
  - BLOOD GLUCOSE INCREASED [None]
  - CONSTIPATION [None]
  - DIABETES MELLITUS [None]
  - EATING DISORDER [None]
  - HEART RATE ABNORMAL [None]
  - HEPATIC PAIN [None]
  - INSOMNIA [None]
  - NECK MASS [None]
  - PAIN IN EXTREMITY [None]
  - PROCTALGIA [None]
  - PRURITUS [None]
  - RASH ERYTHEMATOUS [None]
  - RENAL PAIN [None]
  - RETCHING [None]
